FAERS Safety Report 7433324-4 (Version None)
Quarter: 2011Q2

REPORT INFORMATION
  Report Type: 
  Country: None (occurrence: None)
  Receive Date: 20110422
  Receipt Date: 20110413
  Transmission Date: 20111010
  Serious: Yes (Hospitalization)
  Sender: FDA-Public Use
  Company Number: FR-ELI_LILLY_AND_COMPANY-FR201104003691

PATIENT
  Sex: Female

DRUGS (6)
  1. GEMZAR [Suspect]
     Indication: OVARIAN CANCER
     Dosage: 1690 MG, UNKNOWN
     Route: 042
     Dates: start: 20110329, end: 20110329
  2. POLARAMINE [Concomitant]
     Dosage: UNK, UNKNOWN
     Route: 065
  3. VOLUVEN [Concomitant]
     Dosage: 500 MG, UNKNOWN
     Route: 065
  4. METHYLPREDNISOLONE [Concomitant]
     Indication: SUPPLEMENTATION THERAPY
     Dosage: 60 MG, UNKNOWN
     Route: 042
     Dates: start: 20110329, end: 20110329
  5. ELOXATIN [Concomitant]
     Indication: OVARIAN CANCER
     Dosage: 170 MG, UNK
     Route: 042
     Dates: start: 20110329, end: 20110329
  6. PERFALGAN [Concomitant]
     Dosage: 1 G, UNKNOWN
     Route: 065

REACTIONS (6)
  - DYSPNOEA [None]
  - DIZZINESS [None]
  - VOMITING [None]
  - APHASIA [None]
  - CHOKING [None]
  - BACK PAIN [None]
